FAERS Safety Report 8598048-9 (Version None)
Quarter: 2012Q3

REPORT INFORMATION
  Report Type: 
  Country: None (occurrence: None)
  Receive Date: 20120816
  Receipt Date: 20120807
  Transmission Date: 20120928
  Serious: Yes (Hospitalization, Other)
  Sender: FDA-Public Use
  Company Number: PT-PFIZER INC-2012191932

PATIENT
  Age: 55 Year
  Sex: Female

DRUGS (3)
  1. ALPRAZOLAM [Suspect]
     Indication: INSOMNIA
     Dosage: UNK
  2. RISPERIDONE [Suspect]
     Indication: CATATONIA
     Dosage: UNK
  3. RISPERIDONE [Suspect]
     Indication: IMMOBILE

REACTIONS (4)
  - SUICIDE ATTEMPT [None]
  - ENCEPHALOPATHY [None]
  - OFF LABEL USE [None]
  - RESPIRATORY DEPRESSION [None]
